FAERS Safety Report 5071998-6 (Version None)
Quarter: 2006Q3

REPORT INFORMATION
  Report Type: 
  Country: None (occurrence: None)
  Receive Date: 20060801
  Receipt Date: 20060719
  Transmission Date: 20061208
  Serious: Yes (Death)
  Sender: FDA-Public Use
  Company Number: 227661

PATIENT
  Age: 46 Year
  Sex: Female

DRUGS (7)
  1. RITUXAN [Suspect]
     Indication: RHEUMATOID ARTHRITIS
  2. GOLD TREATMENT (GOLD NOS) [Concomitant]
  3. METHOTREXATE [Concomitant]
  4. ANTIMALARIAL AGENT NOS [Concomitant]
  5. NSAIDS (NON-STEROIDAL ANTI-INFLAMMATORY DRUG NOS) [Concomitant]
  6. REMICADE [Concomitant]
  7. MEDICATION (UNK INGREDIENT) (GENERIC COMPONENT (S) NOT KNOWN) [Concomitant]

REACTIONS (7)
  - CEREBROVASCULAR ACCIDENT [None]
  - INFECTION [None]
  - PNEUMONIA [None]
  - RESPIRATORY FAILURE [None]
  - SEPTIC SHOCK [None]
  - SHIFT TO THE LEFT [None]
  - THERAPY NON-RESPONDER [None]
